FAERS Safety Report 19119944 (Version 1)
Quarter: 2021Q2

REPORT INFORMATION
  Report Type: Spontaneous
  Country: IN (occurrence: IN)
  Receive Date: 20210412
  Receipt Date: 20210412
  Transmission Date: 20210717
  Serious: Yes (Other)
  Sender: FDA-Public Use
  Company Number: IN-LUPIN PHARMACEUTICALS INC.-2021-04439

PATIENT
  Sex: Male

DRUGS (1)
  1. HYDROXYCHLOROQUINE [Suspect]
     Active Substance: HYDROXYCHLOROQUINE
     Indication: COVID-19 PROPHYLAXIS
     Dosage: UNK
     Route: 048
     Dates: start: 2020

REACTIONS (5)
  - Malaise [Recovering/Resolving]
  - Off label use [Unknown]
  - Myalgia [Recovering/Resolving]
  - Herpes zoster [Unknown]
  - Diarrhoea [Recovering/Resolving]
